FAERS Safety Report 4947323-5 (Version None)
Quarter: 2006Q1

REPORT INFORMATION
  Report Type: 
  Country: None (occurrence: None)
  Receive Date: 20060317
  Receipt Date: 20040722
  Transmission Date: 20060701
  Serious: Yes (Other)
  Sender: FDA-Public Use
  Company Number: CA-2004-BP-06014BP

PATIENT
  Sex: Female
  Weight: 71.2 kg

DRUGS (15)
  1. MICARDIS [Suspect]
     Indication: CARDIOVASCULAR DISORDER
     Route: 048
     Dates: start: 20020410
  2. MICARDIS [Suspect]
     Indication: CEREBROVASCULAR ACCIDENT PROPHYLAXIS
  3. RAMIPRIL [Suspect]
     Indication: CARDIOVASCULAR DISORDER
     Route: 048
     Dates: start: 20020410
  4. RAMIPRIL [Suspect]
     Indication: CEREBROVASCULAR ACCIDENT PROPHYLAXIS
  5. ACEBUTOLOL [Concomitant]
  6. SYNTHROID [Concomitant]
  7. DETROL [Concomitant]
  8. IMIPRAMINE [Concomitant]
  9. SIMVASTATIN [Concomitant]
  10. TYLENOL (CAPLET) [Concomitant]
  11. ASPIRIN [Concomitant]
  12. VITAMIN D [Concomitant]
  13. CALCIUM GLUCONATE [Concomitant]
  14. VITAMIN E [Concomitant]
  15. VITAMIN B-12 [Concomitant]

REACTIONS (5)
  - ANAEMIA [None]
  - BLOOD POTASSIUM INCREASED [None]
  - HYPERTENSION [None]
  - NEPHROSCLEROSIS [None]
  - RENAL FAILURE [None]
